FAERS Safety Report 9941955 (Version 2)
Quarter: 2014Q1

REPORT INFORMATION
  Report Type: Report from Study
  Country: US (occurrence: US)
  Receive Date: 20140303
  Receipt Date: 20140303
  Transmission Date: 20141002
  Serious: No
  Sender: FDA-Public Use
  Company Number: US-ABBVIE-13P-163-1035804-00

PATIENT
  Sex: Male
  Weight: 83.08 kg

DRUGS (2)
  1. HUMIRA [Suspect]
     Indication: PSORIASIS
     Route: 058
     Dates: start: 201010
  2. UNKNOWN MEDICATION [Concomitant]

REACTIONS (1)
  - Panic disorder [Not Recovered/Not Resolved]
